FAERS Safety Report 12448878 (Version 6)
Quarter: 2016Q3

REPORT INFORMATION
  Report Type: Spontaneous
  Country: CA (occurrence: CA)
  Receive Date: 20160608
  Receipt Date: 20160725
  Transmission Date: 20161109
  Serious: Yes (Other)
  Sender: FDA-Public Use
  Company Number: CA-009507513-1601CAN001445

PATIENT
  Age: 60 Year
  Sex: Male

DRUGS (3)
  1. ONCOTICE [Suspect]
     Active Substance: BACILLUS CALMETTE-GUERIN SUBSTRAIN TICE LIVE ANTIGEN
     Dosage: 1 TO 8 X 10^8 CFU, WEEKLY
     Route: 043
     Dates: start: 20151117, end: 20151208
  2. ONCOTICE [Suspect]
     Active Substance: BACILLUS CALMETTE-GUERIN SUBSTRAIN TICE LIVE ANTIGEN
     Dosage: 1 TO 8 X 10^8 CFU, WEEKLY
     Route: 043
     Dates: start: 20151117, end: 20151208
  3. ONCOTICE [Suspect]
     Active Substance: BACILLUS CALMETTE-GUERIN SUBSTRAIN TICE LIVE ANTIGEN
     Indication: BLADDER CANCER
     Dosage: 1 TO 8 X 10^8 CFU, WEEKLY
     Route: 043
     Dates: start: 20151117, end: 20151208

REACTIONS (5)
  - Arthralgia [Unknown]
  - Bacterial sepsis [Unknown]
  - Arthritis [Recovered/Resolved]
  - Disseminated Bacillus Calmette-Guerin infection [Unknown]
  - Pyrexia [Unknown]

NARRATIVE: CASE EVENT DATE: 201511
